FAERS Safety Report 5401578-1 (Version None)
Quarter: 2007Q3

REPORT INFORMATION
  Report Type: 
  Country: None (occurrence: None)
  Receive Date: 20070731
  Receipt Date: 20070712
  Transmission Date: 20080115
  Serious: Yes (Hospitalization, Disabling, Other)
  Sender: FDA-Public Use
  Company Number: US-PFIZER INC-2006099987

PATIENT
  Sex: Female
  Weight: 72.6 kg

DRUGS (4)
  1. BEXTRA [Suspect]
     Indication: SJOGREN'S SYNDROME
  2. VIOXX [Suspect]
     Indication: SJOGREN'S SYNDROME
     Route: 048
     Dates: start: 20020601, end: 20030301
  3. HYDROMORPHONE HCL [Concomitant]
  4. IMITREX [Concomitant]
     Dates: start: 19930601

REACTIONS (1)
  - CEREBROVASCULAR ACCIDENT [None]
